FAERS Safety Report 15637947 (Version 1)
Quarter: 2018Q4

REPORT INFORMATION
  Report Type: Spontaneous
  Country: US (occurrence: US)
  Receive Date: 20181114
  Receipt Date: 20181114
  Transmission Date: 20190205
  Serious: No
  Sender: FDA-Public Use
  Company Number: None

PATIENT
  Age: 44 Year
  Sex: Female
  Weight: 93.89 kg

DRUGS (3)
  1. STELARA [Suspect]
     Active Substance: USTEKINUMAB
     Indication: GASTROINTESTINAL DISORDER
     Dosage: INJECT 45MG SUBCUTANEOUSLY ON WEEK 0 AND WEEK 4   AS DIRECTED
     Route: 058
     Dates: start: 201807
  2. STELARA [Suspect]
     Active Substance: USTEKINUMAB
     Indication: ARTHRITIS ENTEROPATHIC
     Dosage: INJECT 45MG SUBCUTANEOUSLY ON WEEK 0 AND WEEK 4   AS DIRECTED
     Route: 058
     Dates: start: 201807
  3. STELARA [Suspect]
     Active Substance: USTEKINUMAB
     Indication: CROHN^S DISEASE
     Dosage: INJECT 45MG SUBCUTANEOUSLY ON WEEK 0 AND WEEK 4   AS DIRECTED
     Route: 058
     Dates: start: 201807

REACTIONS (2)
  - Pain in extremity [None]
  - Product dose omission [None]
